FAERS Safety Report 7516506-2 (Version None)
Quarter: 2011Q2

REPORT INFORMATION
  Report Type: 
  Country: None (occurrence: None)
  Receive Date: 20110601
  Receipt Date: 20110523
  Transmission Date: 20111010
  Serious: Yes (Hospitalization)
  Sender: FDA-Public Use
  Company Number: A0928565A

PATIENT
  Age: 67 Year
  Sex: Female

DRUGS (6)
  1. LOVAZA [Suspect]
     Dosage: 2CAP TWICE PER DAY
     Route: 048
     Dates: start: 20091101
  2. UNSPECIFIED MEDICATION [Concomitant]
  3. AMLODIPINE [Concomitant]
  4. COREG CR [Suspect]
     Dosage: 20MG PER DAY
     Route: 048
     Dates: start: 20080701
  5. JANUVIA [Concomitant]
  6. CRESTOR [Concomitant]

REACTIONS (7)
  - SINUSITIS [None]
  - DIZZINESS [None]
  - MYOCARDIAL INFARCTION [None]
  - CORONARY ARTERY BYPASS [None]
  - VERTIGO [None]
  - CORONARY ARTERY DISEASE [None]
  - CEREBROVASCULAR ACCIDENT [None]
